FAERS Safety Report 10651512 (Version 1)
Quarter: 2014Q4

REPORT INFORMATION
  Report Type: Spontaneous
  Country: US (occurrence: None)
  Receive Date: 20141212
  Receipt Date: 20141212
  Transmission Date: 20150529
  Serious: Yes (Hospitalization)
  Sender: FDA-Public Use
  Company Number: None

PATIENT
  Age: 61 Year
  Sex: Female

DRUGS (1)
  1. GLEEVEC [Suspect]
     Active Substance: IMATINIB MESYLATE
     Dosage: 400 MG 1 DAILY ORAL
     Route: 048
     Dates: start: 20141111, end: 201412

REACTIONS (3)
  - Dehydration [None]
  - Renal failure [None]
  - Blood potassium increased [None]

NARRATIVE: CASE EVENT DATE: 20141210
